FAERS Safety Report 4380506-4 (Version None)
Quarter: 2004Q2

REPORT INFORMATION
  Report Type: 
  Country: None (occurrence: None)
  Receive Date: 20040614
  Receipt Date: 20040109
  Transmission Date: 20050107
  Serious: Yes (Other)
  Sender: FDA-Public Use
  Company Number: WAES 0401USA00720

PATIENT
  Age: 67 Year
  Sex: Female
  Weight: 122.4712 kg

DRUGS (5)
  1. COZAAR [Suspect]
     Indication: PROTEINURIA
     Dosage: 50 MG/DAILY/PO
     Route: 048
     Dates: start: 20031001, end: 20040106
  2. PHOSLO [Concomitant]
  3. ZETIA [Concomitant]
  4. INSULIN, BIPHASIC ISOPHANE [Concomitant]
  5. PREDNISONE [Concomitant]

REACTIONS (1)
  - ANGIONEUROTIC OEDEMA [None]
